FAERS Safety Report 10473062 (Version 1)
Quarter: 2014Q3

REPORT INFORMATION
  Report Type: Spontaneous
  Country: US (occurrence: None)
  Receive Date: 20140923
  Receipt Date: 20140923
  Transmission Date: 20150326
  Serious: Yes (Hospitalization)
  Sender: FDA-Public Use
  Company Number: None

PATIENT
  Age: 78 Year
  Sex: Male

DRUGS (1)
  1. ACETAMINOPHEN. [Suspect]
     Active Substance: ACETAMINOPHEN
     Indication: PAIN
     Route: 042
     Dates: start: 20140912, end: 20140914

REACTIONS (2)
  - International normalised ratio abnormal [None]
  - Hepatic enzyme increased [None]

NARRATIVE: CASE EVENT DATE: 20140915
